FAERS Safety Report 15372604 (Version 1)
Quarter: 2018Q3

REPORT INFORMATION
  Report Type: Spontaneous
  Country: AU (occurrence: AU)
  Receive Date: 20180911
  Receipt Date: 20180911
  Transmission Date: 20181010
  Serious: Yes (Death)
  Sender: FDA-Public Use
  Company Number: AU-BAXTER-2018BAX023370

PATIENT
  Sex: Female

DRUGS (11)
  1. ADULT TRACE ELEMENTS [Suspect]
     Active Substance: MINERALS
     Dosage: BAXTER UNLICENSED SPECIAL, WITH MAGNESIUM SULFATE
     Route: 065
  2. SODIUM ASCORBATE [Suspect]
     Active Substance: SODIUM ASCORBATE
     Indication: PARENTERAL NUTRITION
     Dosage: SODIUM ASCORBATE 15G/50ML, BAXTER UNLICENSED SPECIAL, WITHOUT MAGNESIUM SULFATE
     Route: 065
  3. STERILE WATER [Suspect]
     Active Substance: WATER
     Dosage: WITH MAGNESIUM SULFATE
     Route: 065
  4. CERNEVIT [Suspect]
     Active Substance: VITAMINS
     Dosage: WITH MAGNESIUM SULFATE
     Route: 065
  5. MAGNESIUM SULFATE. [Suspect]
     Active Substance: MAGNESIUM SULFATE
     Indication: PARENTERAL NUTRITION
     Dosage: MAGNESIUM SULFATE 2MMOL/ML, BAXTER UNLICENSED SPECIAL
     Route: 065
  6. OLIMEL [Suspect]
     Active Substance: AMINO ACIDS\DEXTROSE\SOYBEAN OIL
     Indication: PARENTERAL NUTRITION
     Dosage: WITHOUT MAGNESIUM SULFATE
     Route: 065
  7. STERILE WATER [Suspect]
     Active Substance: WATER
     Indication: PARENTERAL NUTRITION
     Dosage: WITHOUT MAGNESIUM SULFATE
     Route: 065
  8. CERNEVIT [Suspect]
     Active Substance: VITAMINS
     Indication: PARENTERAL NUTRITION
     Dosage: WITHOUT MAGNESIUM SULFATE
     Route: 065
  9. OLIMEL [Suspect]
     Active Substance: AMINO ACIDS\DEXTROSE\SOYBEAN OIL
     Dosage: WITH MAGNESIUM SULFATE
     Route: 065
  10. SODIUM ASCORBATE [Suspect]
     Active Substance: SODIUM ASCORBATE
     Dosage: SODIUM ASCORBATE 15G/50ML, BAXTER UNLICENSED SPECIAL, WITH MAGNESIUM SULFATE
     Route: 065
  11. ADULT TRACE ELEMENTS [Suspect]
     Active Substance: MINERALS
     Indication: PARENTERAL NUTRITION
     Dosage: BAXTER UNLICENSED SPECIAL, WITHOUT MAGNESIUM SULFATE
     Route: 065

REACTIONS (1)
  - Death [Fatal]

NARRATIVE: CASE EVENT DATE: 20180831
